FAERS Safety Report 5808250-4 (Version None)
Quarter: 2008Q3

REPORT INFORMATION
  Report Type: 
  Country: None (occurrence: None)
  Receive Date: 20080709
  Receipt Date: 20080626
  Transmission Date: 20090109
  Serious: Yes (Other)
  Sender: FDA-Public Use
  Company Number: RENA-1000166

PATIENT
  Age: 73 Year
  Sex: Female

DRUGS (1)
  1. RENAGEL [Suspect]
     Indication: HYPERPHOSPHATAEMIA
     Dosage: 3.2 G, TID, ORAL
     Route: 048
     Dates: end: 20080524

REACTIONS (2)
  - FOREIGN BODY TRAUMA [None]
  - ORAL ADMINISTRATION COMPLICATION [None]
